FAERS Safety Report 22255516 (Version 1)
Quarter: 2023Q2

REPORT INFORMATION
  Report Type: Report from Study
  Country: PE (occurrence: PE)
  Receive Date: 20230426
  Receipt Date: 20230426
  Transmission Date: 20230721
  Serious: Yes (Other)
  Sender: FDA-Public Use
  Company Number: PE-002147023-NVSC2023PE094626

PATIENT
  Age: 64 Year
  Sex: Female
  Weight: 60.2 kg

DRUGS (1)
  1. KISQALI [Suspect]
     Active Substance: RIBOCICLIB
     Indication: Breast cancer metastatic
     Dosage: 600 MG, QD
     Route: 048
     Dates: start: 20230102

REACTIONS (5)
  - Diabetes mellitus [Unknown]
  - Obesity [Unknown]
  - Body mass index increased [Unknown]
  - Varicose vein [Unknown]
  - Fatigue [Unknown]
